FAERS Safety Report 8083944-1 (Version None)
Quarter: 2012Q1

REPORT INFORMATION
  Report Type: 
  Country: None (occurrence: None)
  Receive Date: 20120128
  Receipt Date: 20110112
  Transmission Date: 20120608
  Serious: No
  Sender: FDA-Public Use
  Company Number: US-ABBOTT-11P-163-0697195-00

PATIENT
  Age: 19 Year
  Sex: Female

DRUGS (3)
  1. HUMIRA [Suspect]
     Indication: CROHN'S DISEASE
     Dates: start: 20101201
  2. PREDNISONE TAB [Concomitant]
     Indication: PRODUCT USED FOR UNKNOWN INDICATION
  3. PENTASA [Concomitant]
     Indication: CROHN'S DISEASE

REACTIONS (8)
  - CRYING [None]
  - FEELING ABNORMAL [None]
  - DEPRESSED MOOD [None]
  - AFFECTIVE DISORDER [None]
  - PELVIC PAIN [None]
  - BACK PAIN [None]
  - VISION BLURRED [None]
  - ARTHRALGIA [None]
